FAERS Safety Report 7352175-2 (Version None)
Quarter: 2011Q1

REPORT INFORMATION
  Report Type: 
  Country: None (occurrence: None)
  Receive Date: 20110315
  Receipt Date: 20110314
  Transmission Date: 20110831
  Serious: No
  Sender: FDA-Public Use
  Company Number: US-JNJFOC-20110302357

PATIENT
  Age: 58 Year
  Sex: Female
  Weight: 97.52 kg

DRUGS (2)
  1. HIGH BLOOD PRESSURE MEDICATION, NOS [Concomitant]
     Indication: HYPERTENSION
     Route: 065
  2. INVEGA SUSTENNA [Suspect]
     Indication: SCHIZOPHRENIA, PARANOID TYPE
     Route: 030

REACTIONS (5)
  - AGGRESSION [None]
  - ANXIETY [None]
  - HYPERTENSION [None]
  - PARANOIA [None]
  - DRUG EFFECT DECREASED [None]
